FAERS Safety Report 9157157 (Version 1)
Quarter: 2013Q1

REPORT INFORMATION
  Report Type: Spontaneous
  Country: US (occurrence: None)
  Receive Date: 20130212
  Receipt Date: 20130212
  Transmission Date: 20140127
  Serious: Yes (Other)
  Sender: FDA-Public Use
  Company Number: AUR-APL-2013-01053

PATIENT
  Age: 48 Year
  Sex: Female

DRUGS (1)
  1. CITALOPRAM (CITALOPRAM) [Suspect]
     Indication: PRODUCT USED FOR UNKNOWN INDICATION
     Dosage: 80 MG (40 MG, 2 IN 1 D), UNKNOWN

REACTIONS (6)
  - Hypertension [None]
  - Irritability [None]
  - Withdrawal syndrome [None]
  - Insomnia [None]
  - Vision blurred [None]
  - Headache [None]
